FAERS Safety Report 25869998 (Version 2)
Quarter: 2025Q4

REPORT INFORMATION
  Report Type: Spontaneous
  Country: KR (occurrence: KR)
  Receive Date: 20251001
  Receipt Date: 20251003
  Transmission Date: 20260117
  Serious: No
  Sender: JOHNSON AND JOHNSON
  Company Number: KR-JNJFOC-20250929868

PATIENT
  Age: 62 Year
  Sex: Female
  Weight: 46.9 kg

DRUGS (2)
  1. AMIVANTAMAB [Suspect]
     Active Substance: AMIVANTAMAB
     Indication: Lung neoplasm malignant
     Route: 042
     Dates: start: 20250703
  2. LAZERTINIB [Suspect]
     Active Substance: LAZERTINIB
     Indication: Lung neoplasm malignant
     Route: 048
     Dates: start: 20250703

REACTIONS (3)
  - Infusion related reaction [Recovered/Resolved]
  - Paronychia [Unknown]
  - Dermatitis acneiform [Unknown]
